FAERS Safety Report 8764047 (Version 2)
Quarter: 2012Q4

REPORT INFORMATION
  Report Type: 
  Country: CA (occurrence: CA)
  Receive Date: 20120831
  Receipt Date: 20120913
  Transmission Date: 20130627
  Serious: Yes (Death)
  Sender: FDA-Public Use
  Company Number: CA-JNJFOC-20120814067

PATIENT

DRUGS (56)
  1. DOXORUBICIN [Suspect]
     Indication: ACUTE LYMPHOCYTIC LEUKAEMIA
     Dosage: on day 1 (intensification therapy for 30 weeks, 10 cycles - 21 days/cycle)
     Route: 042
  2. DOXORUBICIN [Suspect]
     Indication: ACUTE LYMPHOCYTIC LEUKAEMIA
     Dosage: on day 1 (central nervous system therapy for 3 weeks)
     Route: 042
  3. DOXORUBICIN [Suspect]
     Indication: ACUTE LYMPHOCYTIC LEUKAEMIA
     Dosage: on days 0 and 1 (induction therapy for 4 weeks)
     Route: 042
  4. DOXORUBICIN [Suspect]
     Indication: ACUTE LYMPHOCYTIC LEUKAEMIA
     Dosage: on days 0 and 1 (induction therapy for 4 weeks)
     Route: 042
  5. DOXORUBICIN [Suspect]
     Indication: ACUTE LYMPHOCYTIC LEUKAEMIA
     Dosage: on day 1 (intensification therapy for 30 weeks, 10 cycles - 21 days/cycle)
     Route: 042
  6. DOXORUBICIN [Suspect]
     Indication: ACUTE LYMPHOCYTIC LEUKAEMIA
     Dosage: on day 1 (central nervous system therapy for 3 weeks)
     Route: 042
  7. IMATINIB [Suspect]
     Indication: ACUTE LYMPHOCYTIC LEUKAEMIA
     Dosage: from day 2-14 (induction therapy for 4 weeks)
     Route: 048
  8. IMATINIB [Suspect]
     Indication: ACUTE LYMPHOCYTIC LEUKAEMIA
     Dosage: from day 1-14 (intensification therapy for 30 weeks, 10 cycles - 21 days/cycle)
     Route: 048
  9. IMATINIB [Suspect]
     Indication: ACUTE LYMPHOCYTIC LEUKAEMIA
     Dosage: from day 1-14 (central nervous system therapy for 3 weeks)
     Route: 048
  10. IMATINIB [Suspect]
     Indication: ACUTE LYMPHOCYTIC LEUKAEMIA
     Dosage: from day 1-14 (maintenance therapy for 72 weeks, 24 weeks - 21 days/cycle)
     Route: 048
  11. PREDNISONE [Suspect]
     Indication: ACUTE LYMPHOCYTIC LEUKAEMIA
     Dosage: from day 0-28 (induction therapy for 4 weeks)
     Route: 048
  12. VINCRISTINE [Suspect]
     Indication: ACUTE LYMPHOCYTIC LEUKAEMIA
     Dosage: on days 0, 7, 14 and 21 (induction therapy for 4 weeks)
     Route: 042
  13. VINCRISTINE [Suspect]
     Indication: ACUTE LYMPHOCYTIC LEUKAEMIA
     Dosage: on day 1 (central nervous system therapy for 3 weeks)
     Route: 042
  14. VINCRISTINE [Suspect]
     Indication: ACUTE LYMPHOCYTIC LEUKAEMIA
     Dosage: on day 1 (maintenance therapy for 72 weeks, 24 cycles - 21 days/cycle)
     Route: 042
  15. VINCRISTINE [Suspect]
     Indication: ACUTE LYMPHOCYTIC LEUKAEMIA
     Dosage: on day 1 (intensification therapy for 30 weeks, 10 cycles - 21 days/cycle)
     Route: 042
  16. METHOTREXATE [Suspect]
     Indication: ACUTE LYMPHOCYTIC LEUKAEMIA
     Dosage: over 1 hour on day 2 (induction therapy for 4 weeks)
     Route: 042
  17. METHOTREXATE [Suspect]
     Indication: ACUTE LYMPHOCYTIC LEUKAEMIA
     Dosage: on days 2, 9 and 16 (intensification therapy for 30 weeks, 10 cycles - 21 days/cycle)
     Route: 042
  18. METHOTREXATE [Suspect]
     Indication: ACUTE LYMPHOCYTIC LEUKAEMIA
     Dosage: on days 1, 8 and 15 (maintenance therapy for 72 weeks, 24 cycles - 21 days/cycle)
     Route: 042
  19. ASPARAGINASE [Suspect]
     Indication: ACUTE LYMPHOCYTIC LEUKAEMIA
     Dosage: 25000 IU/m2 on day 4 (induction therapy for 4 weeks)
     Route: 030
  20. ASPARAGINASE [Suspect]
     Indication: ACUTE LYMPHOCYTIC LEUKAEMIA
     Dosage: 12500 IU/m2 on days 1, 8 and 15 (intensification theray for 30 weeks, 10 cycles - 21 days/cycle)
     Route: 030
  21. CYTARABINE [Suspect]
     Indication: ACUTE LYMPHOCYTIC LEUKAEMIA
     Dosage: on days 0 and 14 (inducation therapy for 4 weeks)
     Route: 037
  22. CYTARABINE [Suspect]
     Indication: ACUTE LYMPHOCYTIC LEUKAEMIA
     Dosage: every 18 weeks (maintenance therapy for 72 weeks, 24 cycles - 21 days/cycle)
     Route: 037
  23. CYTARABINE [Suspect]
     Indication: ACUTE LYMPHOCYTIC LEUKAEMIA
     Dosage: every 18 weeks (intensification therapy for 30 weeks, 10 cycles - 21days/cycle)
     Route: 037
  24. CYTARABINE [Suspect]
     Indication: ACUTE LYMPHOCYTIC LEUKAEMIA
     Dosage: on days 1, 4, 8 and 11 (central nervous system therapy for 3 weeks)
     Route: 037
  25. METHOTREXATE [Suspect]
     Indication: ACUTE LYMPHOCYTIC LEUKAEMIA
     Dosage: on days 0 and 14 (inducation therapy for 4 weeks)
     Route: 037
  26. METHOTREXATE [Suspect]
     Indication: ACUTE LYMPHOCYTIC LEUKAEMIA
     Dosage: on days 1, 4, 8 and 11 (central nervous system therapy for 3 weeks)
     Route: 037
  27. METHOTREXATE [Suspect]
     Indication: ACUTE LYMPHOCYTIC LEUKAEMIA
     Dosage: every 18 weeks (intensification therapy for 30 weeks, 10 cycles - 21days/cycle)
     Route: 037
  28. METHOTREXATE [Suspect]
     Indication: ACUTE LYMPHOCYTIC LEUKAEMIA
     Dosage: every 18 weeks (maintenance therapy for 72 weeks, 24 cycles - 21 days/cycle)
     Route: 037
  29. HYDROCORTISONE [Suspect]
     Indication: ACUTE LYMPHOCYTIC LEUKAEMIA
     Dosage: on days 0 and 14 (inducation therapy for 4 weeks)
     Route: 037
  30. HYDROCORTISONE [Suspect]
     Indication: ACUTE LYMPHOCYTIC LEUKAEMIA
     Dosage: every 18 weeks (maintenance therapy for 72 weeks, 24 cycles - 21 days/cycle)
     Route: 037
  31. HYDROCORTISONE [Suspect]
     Indication: ACUTE LYMPHOCYTIC LEUKAEMIA
     Dosage: every 18 weeks (intensification therapy for 30 weeks, 10 cycles - 21days/cycle)
     Route: 037
  32. HYDROCORTISONE [Suspect]
     Indication: ACUTE LYMPHOCYTIC LEUKAEMIA
     Dosage: on days 1, 4, 8 and 11 (central nervous system therapy for 3 weeks)
     Route: 037
  33. 6-MERCAPTOPURINE [Suspect]
     Indication: ACUTE LYMPHOCYTIC LEUKAEMIA
     Dosage: from day 1-14 (central nervous system therapy for 3 weeks)
     Route: 048
  34. 6-MERCAPTOPURINE [Suspect]
     Indication: ACUTE LYMPHOCYTIC LEUKAEMIA
     Dosage: from day 1-14 (intensification therapy for 30 weeks, 10 cycles - 21 days/cycle)
     Route: 048
  35. 6-MERCAPTOPURINE [Suspect]
     Indication: ACUTE LYMPHOCYTIC LEUKAEMIA
     Dosage: from day 1-14 (maintenance therapy for 72 weeks, 24 cycles - 21 days/cycle)
     Route: 048
  36. RADIATION THERAPY [Suspect]
     Indication: ACUTE LYMPHOCYTIC LEUKAEMIA
     Dosage: 1200 cGy over 8 days (central nervous system therapy for 3 weeks)
     Route: 065
  37. DEXAMETHASONE [Suspect]
     Indication: ACUTE LYMPHOCYTIC LEUKAEMIA
     Dosage: from day 1-5 (intensification therapy for 30 weeks, 10 cycles - 21 days/cycle)
     Route: 048
  38. DEXAMETHASONE [Suspect]
     Indication: ACUTE LYMPHOCYTIC LEUKAEMIA
     Dosage: from day 1-5 (maintenance therapy for 72 weeks, 24 cycles - 21 days/cycle)
     Route: 048
  39. METHOTREXATE [Suspect]
     Indication: ACUTE LYMPHOCYTIC LEUKAEMIA
     Dosage: on days 1, 8 and 15 (maintenance therapy for 72 weeks, 24 cycles - 21 days/cycle)
     Route: 030
  40. CYCLOPHOSPHAMIDE [Suspect]
     Indication: ACUTE LYMPHOCYTIC LEUKAEMIA
     Dosage: twice (Myeloablative HSCT preparative regimen)
     Route: 065
  41. RADIATION THERAPY [Suspect]
     Indication: ACUTE LYMPHOCYTIC LEUKAEMIA
     Dosage: 2 Gy in 1 fractions (reduced intensity conditioning regimen)
     Route: 065
  42. RADIATION THERAPY [Suspect]
     Indication: ACUTE LYMPHOCYTIC LEUKAEMIA
     Dosage: 12 Gy in 6 fractions or 4 Gy in 2 fractions (Myeloablative HSCT preparative regimen)
     Route: 065
  43. FLUDARABINE [Suspect]
     Indication: ACUTE LYMPHOCYTIC LEUKAEMIA
     Dosage: four times (reduced intensity conditioning regimen)
     Route: 065
  44. FLUDARABINE [Suspect]
     Indication: ACUTE LYMPHOCYTIC LEUKAEMIA
     Dosage: four times (Myeloablative HSCT preparative regimen)
     Route: 065
  45. BUSULFAN [Suspect]
     Indication: ACUTE LYMPHOCYTIC LEUKAEMIA
     Dosage: four times (Myeloablative HSCT preparative regimen)
     Route: 065
  46. BUSULFAN [Suspect]
     Indication: ACUTE LYMPHOCYTIC LEUKAEMIA
     Dosage: twice (reduced intensity conditioning regimen)
     Route: 065
  47. LEUCOVORIN [Suspect]
     Indication: PROPHYLAXIS
     Dosage: on day 2
     Route: 065
  48. TRIMETHOPRIM AND SULFAMETHOXAZOLE [Concomitant]
     Indication: ANTIFUNGAL PROPHYLAXIS
     Route: 065
  49. PENTAMIDINE [Concomitant]
     Indication: ANTIFUNGAL PROPHYLAXIS
     Dosage: if the patient had sulpha sensitivity
     Route: 055
  50. FLUCONAZOLE [Concomitant]
     Indication: ANTIFUNGAL PROPHYLAXIS
     Route: 065
  51. CALCIUM AND VITAMIN D [Concomitant]
     Indication: PROPHYLAXIS
     Route: 065
  52. ALENDRONATE [Concomitant]
     Indication: PROPHYLAXIS
     Route: 065
  53. RISEDRONATE [Concomitant]
     Indication: PROPHYLAXIS
     Route: 065
  54. CICLOSPORIN [Concomitant]
     Indication: PROPHYLAXIS AGAINST GRAFT VERSUS HOST DISEASE
     Route: 065
  55. METHOTREXATE [Concomitant]
     Indication: PROPHYLAXIS AGAINST GRAFT VERSUS HOST DISEASE
     Route: 065
  56. ALEMTUZUMAB [Concomitant]
     Indication: PROPHYLAXIS AGAINST GRAFT VERSUS HOST DISEASE
     Route: 065

REACTIONS (2)
  - Venoocclusive disease [Fatal]
  - Off label use [Unknown]
